FAERS Safety Report 4473962-4 (Version None)
Quarter: 2004Q4

REPORT INFORMATION
  Report Type: 
  Country: None (occurrence: None)
  Receive Date: 20041014
  Receipt Date: 20041006
  Transmission Date: 20050328
  Serious: Yes (Death)
  Sender: FDA-Public Use
  Company Number: US-JNJFOC-20041002249

PATIENT
  Sex: Female
  Weight: 56.7 kg

DRUGS (12)
  1. REMICADE [Suspect]
     Indication: RHEUMATOID ARTHRITIS
     Dosage: LAST INFUSION.
     Route: 042
  2. REMRON [Concomitant]
  3. TOPROL-XL [Concomitant]
  4. RELAFEN [Concomitant]
  5. FOLIC ACID [Concomitant]
  6. METHOTREXATE [Concomitant]
     Dosage: ON HOLD AT TIME OF DEATH.
  7. GLUCOPHAGE [Concomitant]
  8. FORTES [Concomitant]
  9. FORTES [Concomitant]
  10. FORTES [Concomitant]
  11. FORTES [Concomitant]
  12. FORTES [Concomitant]

REACTIONS (1)
  - DEATH [None]
